FAERS Safety Report 25166218 (Version 1)
Quarter: 2025Q2

REPORT INFORMATION
  Report Type: Report from Study
  Country: AR (occurrence: AR)
  Receive Date: 20250407
  Receipt Date: 20250407
  Transmission Date: 20250717
  Serious: Yes (Hospitalization)
  Sender: BIOVITRUM
  Company Number: AR-AstraZeneca-CH-00838221A

PATIENT
  Sex: Female

DRUGS (1)
  1. PALIVIZUMAB [Suspect]
     Active Substance: PALIVIZUMAB
     Indication: Premature baby
     Route: 058
     Dates: start: 20240826

REACTIONS (1)
  - Bronchospasm [Unknown]
